FAERS Safety Report 10341898 (Version 1)
Quarter: 2014Q3

REPORT INFORMATION
  Report Type: Spontaneous
  Country: US (occurrence: None)
  Receive Date: 20140722
  Receipt Date: 20140722
  Transmission Date: 20150326
  Serious: Yes (Other)
  Sender: FDA-Public Use
  Company Number: AUR-APU-2014-07110

PATIENT
  Age: 69 Year
  Sex: Female
  Weight: 88 kg

DRUGS (5)
  1. DEXTROAMPHETAMINE SULFATE. [Suspect]
     Active Substance: DEXTROAMPHETAMINE SULFATE
     Indication: CHRONIC FATIGUE SYNDROME
     Dates: start: 20140618
  2. DEXTROAMPHETAMINE SULFATE. [Suspect]
     Active Substance: DEXTROAMPHETAMINE SULFATE
     Indication: POST-TRAUMATIC STRESS DISORDER
     Dates: start: 20140618
  3. DEXTROAMPHETAMINE SULFATE. [Suspect]
     Active Substance: DEXTROAMPHETAMINE SULFATE
     Dates: start: 20140618
  4. DEXTROAMPHETAMINE SULFATE. [Suspect]
     Active Substance: DEXTROAMPHETAMINE SULFATE
     Indication: PANIC ATTACK
     Dates: start: 20140618
  5. DEXTROAMPHETAMINE SULFATE. [Suspect]
     Active Substance: DEXTROAMPHETAMINE SULFATE
     Indication: ANXIETY
     Dates: start: 20140618

REACTIONS (10)
  - Diarrhoea [None]
  - Malaise [None]
  - Skin discolouration [None]
  - Vomiting [None]
  - Dry skin [None]
  - Confusional state [None]
  - Alopecia [None]
  - Nausea [None]
  - Vertigo [None]
  - Weight decreased [None]

NARRATIVE: CASE EVENT DATE: 20140618
